FAERS Safety Report 8526012-4 (Version None)
Quarter: 2012Q3

REPORT INFORMATION
  Report Type: 
  Country: None (occurrence: None)
  Receive Date: 20120720
  Receipt Date: 20120704
  Transmission Date: 20120928
  Serious: Yes (Other)
  Sender: FDA-Public Use
  Company Number: DE-ROCHE-1086164

PATIENT
  Age: 66 Year
  Sex: Male

DRUGS (2)
  1. ROFERON-A [Suspect]
     Indication: PRODUCT USED FOR UNKNOWN INDICATION
  2. AVASTIN [Suspect]
     Indication: RENAL CELL CARCINOMA

REACTIONS (6)
  - NEUTROPENIA [None]
  - HYPERTENSION [None]
  - LEUKOPENIA [None]
  - THROMBOCYTOPENIA [None]
  - PYREXIA [None]
  - PROTEINURIA [None]
